FAERS Safety Report 15121630 (Version 1)
Quarter: 2018Q3

REPORT INFORMATION
  Report Type: Spontaneous
  Country: US (occurrence: US)
  Receive Date: 20180613
  Receipt Date: 20180613
  Transmission Date: 20181010
  Serious: Yes (Hospitalization)
  Sender: FDA-Public Use
  Company Number: None

PATIENT
  Age: 1 Day
  Sex: Female
  Weight: 3.1 kg

DRUGS (1)
  1. AQUAMEPHYTON [Suspect]
     Active Substance: PHYTONADIONE
     Indication: ANTICOAGULANT THERAPY
     Route: 042
     Dates: start: 20180208, end: 20180208

REACTIONS (1)
  - Hyperbilirubinaemia neonatal [None]

NARRATIVE: CASE EVENT DATE: 20180208
